FAERS Safety Report 9628020 (Version 7)
Quarter: 2014Q2

REPORT INFORMATION
  Report Type: Spontaneous
  Country: US (occurrence: US)
  Receive Date: 20131016
  Receipt Date: 20140603
  Transmission Date: 20141212
  Serious: Yes (Hospitalization)
  Sender: FDA-Public Use
  Company Number: US-B.I. PHARMACEUTICALS,INC./RIDGEFIELD-2013-BI-32367BP

PATIENT
  Age: 89 Year
  Sex: Male
  Weight: 106.5 kg

DRUGS (15)
  1. PRADAXA [Suspect]
     Indication: ATRIAL FIBRILLATION
     Dosage: 300 MG
     Route: 048
     Dates: start: 20110623, end: 20110927
  2. TYLENOL PM [Concomitant]
     Route: 065
  3. ASACOL [Concomitant]
     Dosage: 2400 MG
     Route: 048
     Dates: start: 1995
  4. FINASTERIDE [Concomitant]
     Dosage: 5 MG
     Route: 048
     Dates: start: 2005
  5. DILTIAZEM [Concomitant]
     Route: 065
     Dates: start: 2010
  6. METAMUCIL CAPSULE [Concomitant]
     Dosage: 4 ANZ
     Route: 065
  7. FLAX OILS CAPSULE [Concomitant]
     Route: 065
  8. MULTI VITAMIN [Concomitant]
     Dosage: 1 ANZ
     Route: 048
  9. OCUVITE/LUTEM [Concomitant]
     Dosage: 1 ANZ
     Route: 048
  10. VITAMIN C/ROSE HIPS [Concomitant]
     Dosage: 500 MG
     Route: 048
  11. NADOLOL [Concomitant]
     Dosage: 10 MG
     Route: 065
  12. BENAZEPRIL [Concomitant]
     Dosage: 40 MG
     Route: 048
  13. AMLODIPINE [Concomitant]
     Dosage: 10 MG
     Route: 048
  14. PPI [Concomitant]
     Route: 065
  15. ASPIRIN [Concomitant]
     Dosage: 81 MG
     Route: 048

REACTIONS (7)
  - Gastrointestinal haemorrhage [Unknown]
  - Ulcer haemorrhage [Unknown]
  - Gastritis haemorrhagic [Unknown]
  - Pericardial haemorrhage [Recovered/Resolved]
  - Epistaxis [Unknown]
  - Ecchymosis [Unknown]
  - Contusion [Unknown]
